FAERS Safety Report 6478752-9 (Version None)
Quarter: 2009Q4

REPORT INFORMATION
  Report Type: 
  Country: None (occurrence: None)
  Receive Date: 20091202
  Receipt Date: 20091123
  Transmission Date: 20100525
  Serious: Yes (Hospitalization)
  Sender: FDA-Public Use
  Company Number: 2009US003783

PATIENT
  Age: 45 Year
  Sex: Male

DRUGS (6)
  1. PROGRAF [Suspect]
     Indication: RENAL TRANSPLANT
     Dosage: 2 MG, UID/QD, ORAL
     Route: 048
     Dates: start: 20090717, end: 20090930
  2. PREDNISOLONE [Concomitant]
  3. MYCOPHENOLATE MOFETIL [Concomitant]
  4. LOSARTAN (LOSARTAN) [Concomitant]
  5. FUROSEMIDE [Concomitant]
  6. LOVASTATIN [Concomitant]

REACTIONS (1)
  - URETHRAL OBSTRUCTION [None]
